FAERS Safety Report 19069389 (Version 3)
Quarter: 2021Q3

REPORT INFORMATION
  Report Type: Spontaneous
  Country: US (occurrence: US)
  Receive Date: 20210329
  Receipt Date: 20210915
  Transmission Date: 20211014
  Serious: Yes (Other)
  Sender: FDA-Public Use
  Company Number: US-GILEAD-2021-0523107

PATIENT
  Age: 50 Year
  Sex: Male
  Weight: 61.22 kg

DRUGS (35)
  1. BIKTARVY [Concomitant]
     Active Substance: BICTEGRAVIR SODIUM\EMTRICITABINE\TENOFOVIR ALAFENAMIDE FUMARATE
  2. TRIUMEQ [Concomitant]
     Active Substance: ABACAVIR SULFATE\DOLUTEGRAVIR SODIUM\LAMIVUDINE
  3. ALPRAZOLAM. [Concomitant]
     Active Substance: ALPRAZOLAM
  4. ANORO ELLIPTA [Concomitant]
     Active Substance: UMECLIDINIUM BROMIDE\VILANTEROL TRIFENATATE
  5. NEOMYCIN / POLY B / DEXAMETHASONE [Concomitant]
     Active Substance: DEXAMETHASONE\NEOMYCIN SULFATE\POLYMYXIN B SULFATE
  6. OXYCODONE [Concomitant]
     Active Substance: OXYCODONE
  7. OXYCONTIN [Concomitant]
     Active Substance: OXYCODONE HYDROCHLORIDE
  8. CHANTIX [Concomitant]
     Active Substance: VARENICLINE TARTRATE
  9. DICLOFENAC [Concomitant]
     Active Substance: DICLOFENAC
  10. DOVATO [Concomitant]
     Active Substance: DOLUTEGRAVIR SODIUM\LAMIVUDINE
  11. EPINEPHRINE. [Concomitant]
     Active Substance: EPINEPHRINE
  12. PERCOCET [OXYCODONE HYDROCHLORIDE;OXYCODONE TEREPHTHALATE;PARACETAMOL] [Concomitant]
     Active Substance: ACETAMINOPHEN\OXYCODONE HYDROCHLORIDE\OXYCODONE TEREPHTHALATE
  13. TAMSULOSIN [Concomitant]
     Active Substance: TAMSULOSIN
  14. ATRIPLA [Suspect]
     Active Substance: EFAVIRENZ\EMTRICITABINE\TENOFOVIR DISOPROXIL FUMARATE
     Indication: HIV INFECTION
     Dosage: UNK
     Route: 048
     Dates: start: 2006, end: 201608
  15. NITROGLYCERIN. [Concomitant]
     Active Substance: NITROGLYCERIN
  16. DEXAMETHASONE. [Concomitant]
     Active Substance: DEXAMETHASONE
  17. ALBUTEROL HFA [Concomitant]
     Active Substance: ALBUTEROL SULFATE
  18. CYCLOBENZAPRINE. [Concomitant]
     Active Substance: CYCLOBENZAPRINE
  19. FUROSEMIDE. [Concomitant]
     Active Substance: FUROSEMIDE
  20. LYRICA [Concomitant]
     Active Substance: PREGABALIN
  21. NARCAN [Concomitant]
     Active Substance: NALOXONE HYDROCHLORIDE
  22. PROAIR BRONQUIAL [Concomitant]
  23. PROVENTIL HFA [Concomitant]
     Active Substance: ALBUTEROL SULFATE
  24. TEMAZEPAM. [Concomitant]
     Active Substance: TEMAZEPAM
  25. XANAX [Concomitant]
     Active Substance: ALPRAZOLAM
  26. GABAPENTIN. [Concomitant]
     Active Substance: GABAPENTIN
  27. NICOTINE. [Concomitant]
     Active Substance: NICOTINE
  28. PANTOPRAZOLE [Concomitant]
     Active Substance: PANTOPRAZOLE
  29. AMITRIPTYLINE [Concomitant]
     Active Substance: AMITRIPTYLINE
  30. DOXYCYCLINE. [Concomitant]
     Active Substance: DOXYCYCLINE
  31. DRONABINOL. [Concomitant]
     Active Substance: DRONABINOL
  32. FLUOROURACIL. [Concomitant]
     Active Substance: FLUOROURACIL
  33. TOBRADEX [Concomitant]
     Active Substance: DEXAMETHASONE\TOBRAMYCIN
  34. MORPHINE [Concomitant]
     Active Substance: MORPHINE
  35. RESTORIL [CHLORMEZANONE] [Concomitant]
     Active Substance: CHLORMEZANONE

REACTIONS (10)
  - Pain [Not Recovered/Not Resolved]
  - Radius fracture [Not Recovered/Not Resolved]
  - Anhedonia [Not Recovered/Not Resolved]
  - Bone density decreased [Not Recovered/Not Resolved]
  - Fall [Unknown]
  - Osteoporosis [Not Recovered/Not Resolved]
  - Therapeutic product effect decreased [Unknown]
  - Emotional distress [Not Recovered/Not Resolved]
  - Anxiety [Not Recovered/Not Resolved]
  - Wrist fracture [Recovered/Resolved]

NARRATIVE: CASE EVENT DATE: 201403
